FAERS Safety Report 5852999-4 (Version None)
Quarter: 2008Q3

REPORT INFORMATION
  Report Type: 
  Country: None (occurrence: None)
  Receive Date: 20080821
  Receipt Date: 20080811
  Transmission Date: 20090109
  Serious: Yes (Death, Hospitalization, Other)
  Sender: FDA-Public Use
  Company Number: GB-WYE-H05243308

PATIENT
  Age: 85 Year
  Sex: Female

DRUGS (9)
  1. AMIODARONE [Suspect]
     Indication: TACHYCARDIA
     Route: 048
     Dates: start: 20051201, end: 20080128
  2. FERROUS SULFATE TAB [Concomitant]
     Route: 065
  3. FOLIC ACID [Concomitant]
     Route: 065
  4. TRIMETHOPRIM [Concomitant]
     Route: 065
  5. GLICLAZIDE [Concomitant]
     Route: 065
  6. ACETAMINOPHEN [Concomitant]
     Dosage: UNKNOWN
     Route: 065
  7. QUETIAPINE [Concomitant]
     Route: 065
  8. BISOPROLOL FUMARATE [Concomitant]
     Route: 048
  9. FUROSEMIDE [Concomitant]
     Route: 065

REACTIONS (20)
  - AGGRESSION [None]
  - ANOREXIA [None]
  - ANTISOCIAL BEHAVIOUR [None]
  - CEREBROVASCULAR DISORDER [None]
  - CONFUSIONAL STATE [None]
  - DIABETES MELLITUS [None]
  - DYSARTHRIA [None]
  - EMOTIONAL DISTRESS [None]
  - GENERAL PHYSICAL HEALTH DETERIORATION [None]
  - HALLUCINATION [None]
  - INFLAMMATION [None]
  - MICTURITION URGENCY [None]
  - MYOCARDIAL ISCHAEMIA [None]
  - OEDEMA PERIPHERAL [None]
  - PARANOIA [None]
  - POOR QUALITY SLEEP [None]
  - POST THROMBOTIC SYNDROME [None]
  - PULMONARY FIBROSIS [None]
  - THYROIDITIS ACUTE [None]
  - WEIGHT DECREASED [None]
